FAERS Safety Report 11219081 (Version 4)
Quarter: 2015Q4

REPORT INFORMATION
  Report Type: Spontaneous
  Country: JP (occurrence: JP)
  Receive Date: 20150625
  Receipt Date: 20151105
  Transmission Date: 20160304
  Serious: Yes (Death, Other)
  Sender: FDA-Public Use
  Company Number: JP-BAYER-2013-013739

PATIENT
  Age: 72 Year
  Sex: Male
  Weight: 55 kg

DRUGS (1)
  1. NEXAVAR [Suspect]
     Active Substance: SORAFENIB
     Indication: HEPATOCELLULAR CARCINOMA
     Dosage: DAILY DOSE 400 MG
     Route: 048
     Dates: start: 20121226, end: 201301

REACTIONS (4)
  - Liver disorder [Recovering/Resolving]
  - Hepatocellular carcinoma [Fatal]
  - Gastric ulcer haemorrhage [Recovering/Resolving]
  - Small intestine carcinoma metastatic [None]

NARRATIVE: CASE EVENT DATE: 201301
